FAERS Safety Report 22022332 (Version 2)
Quarter: 2023Q2

REPORT INFORMATION
  Report Type: Spontaneous
  Country: QA (occurrence: QA)
  Receive Date: 20230222
  Receipt Date: 20230518
  Transmission Date: 20230721
  Serious: Yes (Life-Threatening, Other)
  Sender: FDA-Public Use
  Company Number: QA-002147023-NVSC2023QA040203

PATIENT
  Age: 30 Year
  Sex: Male

DRUGS (2)
  1. ADAKVEO [Suspect]
     Active Substance: CRIZANLIZUMAB-TMCA
     Indication: Sickle cell disease
     Dosage: UNK
     Route: 042
  2. ADAKVEO [Suspect]
     Active Substance: CRIZANLIZUMAB-TMCA
     Dosage: 5 MG/KG, QMO
     Route: 042
     Dates: start: 20221201, end: 20221201

REACTIONS (5)
  - Anaphylactic shock [Recovered/Resolved with Sequelae]
  - Dyspnoea [Unknown]
  - Rash [Unknown]
  - Renal injury [Unknown]
  - Hypovolaemia [Unknown]
